FAERS Safety Report 7084482-5 (Version None)
Quarter: 2010Q4

REPORT INFORMATION
  Report Type: 
  Country: None (occurrence: None)
  Receive Date: 20101104
  Receipt Date: 20101029
  Transmission Date: 20110411
  Serious: Yes (Other)
  Sender: FDA-Public Use
  Company Number: US-PFIZER INC-2010131771

PATIENT
  Sex: Female
  Weight: 69 kg

DRUGS (3)
  1. CHANTIX [Suspect]
     Indication: SMOKING CESSATION THERAPY
     Dosage: 0.5 MG, 1X/DAY
     Route: 048
     Dates: start: 20100928
  2. CHANTIX [Suspect]
     Dosage: 0.5 MG, 2X/DAY
     Dates: end: 20101002
  3. ALENDRONATE SODIUM [Concomitant]
     Indication: BONE DENSITY ABNORMAL
     Dosage: UNK

REACTIONS (4)
  - HYPERSENSITIVITY [None]
  - PRURITUS [None]
  - RASH [None]
  - URTICARIA [None]
